FAERS Safety Report 24650444 (Version 1)
Quarter: 2024Q4

REPORT INFORMATION
  Report Type: Spontaneous
  Country: FR (occurrence: FR)
  Receive Date: 20241122
  Receipt Date: 20241122
  Transmission Date: 20250115
  Serious: Yes (Life-Threatening, Hospitalization)
  Sender: EXELIXIS
  Company Number: FR-IPSEN Group, Research and Development-2024-23463

PATIENT
  Age: 60 Year
  Sex: Male
  Weight: 69 kg

DRUGS (7)
  1. CABOMETYX [Suspect]
     Active Substance: CABOZANTINIB S-MALATE
     Indication: Clear cell renal cell carcinoma
     Dosage: 40 MG, QD
     Route: 048
     Dates: start: 20240926, end: 20241105
  2. AMOXICILLIN TRIHYDRATE [Suspect]
     Active Substance: AMOXICILLIN
     Indication: Upper respiratory tract infection
     Dosage: 1 G, QOD
     Route: 048
     Dates: start: 20241029, end: 20241105
  3. OPDIVO [Suspect]
     Active Substance: NIVOLUMAB
     Indication: Clear cell renal cell carcinoma
     Dosage: 240 MG (EVERY 14 DAYS, 10 MG/ML, CONCENTRATE FOR SOLUTION FOR INFUSION)
     Route: 042
     Dates: start: 20240926, end: 20241024
  4. INNOHEP [Suspect]
     Active Substance: TINZAPARIN SODIUM
     Indication: Deep vein thrombosis
     Dosage: 7000 [IU], QD
     Route: 058
     Dates: start: 20241019
  5. PREDNISOLONE SODIUM METAZOATE [Suspect]
     Active Substance: PREDNISOLONE SODIUM METAZOATE
     Indication: Upper respiratory tract infection
     Dosage: 70 MG, QD
     Route: 048
     Dates: start: 20241029, end: 20241102
  6. Tramadol hydrochloride od [Concomitant]
     Indication: Analgesic intervention supportive therapy
     Dosage: UNK
     Route: 048
     Dates: start: 20241025
  7. SERRAPEPTASE [Suspect]
     Active Substance: SERRAPEPTASE
     Dates: start: 20241029

REACTIONS (1)
  - Agranulocytosis [Recovered/Resolved]

NARRATIVE: CASE EVENT DATE: 20241104
